FAERS Safety Report 5280637-0 (Version None)
Quarter: 2007Q1

REPORT INFORMATION
  Report Type: 
  Country: None (occurrence: None)
  Receive Date: 20061221
  Receipt Date: 20060815
  Transmission Date: 20070707
  Serious: No
  Sender: FDA-Public Use
  Company Number: US-CVT-061742

PATIENT
  Age: 79 Year
  Sex: Male

DRUGS (6)
  1. RANEXA [Suspect]
     Indication: ANGINA PECTORIS
     Dosage: 500MG,BID,ORAL
     Route: 048
     Dates: start: 20060601, end: 20060601
  2. FELODIPINE [Concomitant]
  3. ATENOLOL [Concomitant]
  4. DIGOXIN /00017701/(DIGOXIN) [Concomitant]
  5. DIXAZOSIN /00639301/(DOXAZOSIN) [Concomitant]
  6. SIMVASTATIN [Concomitant]

REACTIONS (1)
  - FATIGUE [None]
